FAERS Safety Report 7313845-5 (Version None)
Quarter: 2011Q1

REPORT INFORMATION
  Report Type: 
  Country: None (occurrence: None)
  Receive Date: 20110218
  Receipt Date: 20110218
  Transmission Date: 20110831
  Serious: No
  Sender: FDA-Public Use
  Company Number: None

PATIENT
  Sex: Female

DRUGS (1)
  1. LUPRON [Suspect]
     Indication: CARDIOVASCULAR DISORDER
     Dosage: 3.75 MG IM
     Route: 030
     Dates: start: 20110103, end: 20110207

REACTIONS (2)
  - CHEST DISCOMFORT [None]
  - DYSPNOEA [None]
